FAERS Safety Report 8875185 (Version 2)
Quarter: 2012Q4

REPORT INFORMATION
  Report Type: 
  Country: US (occurrence: US)
  Receive Date: 20121023
  Receipt Date: 20121221
  Transmission Date: 20130627
  Serious: No
  Sender: FDA-Public Use
  Company Number: US-ASTRAZENECA-2012SE77917

PATIENT
  Sex: Female

DRUGS (2)
  1. SYMBICORT [Suspect]
     Indication: EMPHYSEMA
     Dosage: 160/ 4.5 MCG, TWO PUFFS TWO TIMES A DAY
     Route: 055
  2. SYMBICORT [Suspect]
     Indication: EMPHYSEMA
     Dosage: 160/ 4.5 MCG, UNKNOWN FREQUENCY
     Route: 055
     Dates: start: 20120927

REACTIONS (2)
  - Dyspnoea [Unknown]
  - Circumstance or information capable of leading to medication error [Unknown]
